FAERS Safety Report 5722202-4 (Version None)
Quarter: 2008Q2

REPORT INFORMATION
  Report Type: 
  Country: None (occurrence: None)
  Receive Date: 20080429
  Receipt Date: 20080429
  Transmission Date: 20081010
  Serious: Yes (Death, Hospitalization)
  Sender: FDA-Public Use
  Company Number: HQWYE988404SEP07

PATIENT
  Sex: Male
  Weight: 114 kg

DRUGS (2)
  1. TIGECYCLINE [Suspect]
     Indication: OSTEOMYELITIS
     Route: 042
     Dates: start: 20070501, end: 20070701
  2. TIGECYCLINE [Suspect]
     Indication: MYCOBACTERIUM CHELONEI INFECTION

REACTIONS (3)
  - MULTI-ORGAN FAILURE [None]
  - PANCREATITIS HAEMORRHAGIC [None]
  - PANCREATITIS NECROTISING [None]
